FAERS Safety Report 9107505 (Version 1)
Quarter: 2013Q1

REPORT INFORMATION
  Report Type: Spontaneous
  Country: FR (occurrence: FR)
  Receive Date: 20130221
  Receipt Date: 20130221
  Transmission Date: 20140127
  Serious: Yes (Other)
  Sender: FDA-Public Use
  Company Number: FR-VERTEX PHARMACEUTICALS INC.-2013-002502

PATIENT
  Sex: Male

DRUGS (3)
  1. INCIVO [Suspect]
     Indication: HEPATITIS C
     Route: 048
     Dates: start: 20121001
  2. ALL OTHER THERAPEUTIC PRODUCTS [Concomitant]
     Dosage: DOSAGE FORM: UNSPECIFIED
     Route: 065
     Dates: start: 20121001
  3. LEVOTHYROX [Concomitant]
     Indication: HORMONE THERAPY
     Dosage: 125 ?G, QD

REACTIONS (1)
  - Hypothyroidism [Unknown]
